FAERS Safety Report 6929170-8 (Version None)
Quarter: 2010Q3

REPORT INFORMATION
  Report Type: 
  Country: None (occurrence: None)
  Receive Date: 20100813
  Receipt Date: 20100804
  Transmission Date: 20110219
  Serious: Yes (Hospitalization, Other)
  Sender: FDA-Public Use
  Company Number: 2010SP035777

PATIENT
  Age: 40 Year
  Sex: Male

DRUGS (16)
  1. SAPHRIS [Suspect]
     Indication: PSYCHOTIC DISORDER
     Dosage: 5 MG;BID;SL
     Route: 060
     Dates: start: 20100612, end: 20100617
  2. CLOZARIL [Suspect]
     Indication: PRODUCT USED FOR UNKNOWN INDICATION
     Dosage: 100 MG;QAM; 300 MG;HS
     Dates: end: 20100610
  3. CLOZARIL [Suspect]
     Indication: PRODUCT USED FOR UNKNOWN INDICATION
     Dosage: 100 MG;QAM; 300 MG;HS
     Dates: start: 20100519
  4. DIAMOX SRC [Suspect]
     Indication: PRODUCT USED FOR UNKNOWN INDICATION
     Dosage: 500 MG; BID;
  5. NORVASC [Suspect]
     Indication: PRODUCT USED FOR UNKNOWN INDICATION
     Dosage: 5 MG; QD;
     Dates: start: 20100607
  6. RISPERDAL [Suspect]
     Indication: PRODUCT USED FOR UNKNOWN INDICATION
     Dosage: 4 MG;HS; 6 MG;HS; 3 MG;HS;
     Dates: start: 20100518, end: 20100611
  7. RISPERDAL [Suspect]
     Indication: PRODUCT USED FOR UNKNOWN INDICATION
     Dosage: 4 MG;HS; 6 MG;HS; 3 MG;HS;
     Dates: start: 20100611, end: 20100617
  8. RISPERDAL [Suspect]
     Indication: PRODUCT USED FOR UNKNOWN INDICATION
     Dosage: 4 MG;HS; 6 MG;HS; 3 MG;HS;
     Dates: start: 20100617
  9. GEODON [Suspect]
     Indication: PRODUCT USED FOR UNKNOWN INDICATION
     Dosage: 80 MG; BID;
     Dates: end: 20100518
  10. SEROQUEL XR [Suspect]
     Indication: PRODUCT USED FOR UNKNOWN INDICATION
     Dosage: 300 MG; QD;
     Dates: start: 20100518
  11. ATENOLOL [Concomitant]
  12. COGENTIN [Concomitant]
  13. COUMADIN [Concomitant]
  14. DDAVP [Concomitant]
  15. FOLIC ACID [Concomitant]
  16. XALATAN [Concomitant]

REACTIONS (1)
  - WHITE BLOOD CELL COUNT DECREASED [None]
